FAERS Safety Report 23423278 (Version 4)
Quarter: 2024Q4

REPORT INFORMATION
  Report Type: Report from Study
  Country: US (occurrence: US)
  Receive Date: 20240119
  Receipt Date: 20241126
  Transmission Date: 20250115
  Serious: Yes (Other)
  Sender: TAIHO ONCOLOGY INC
  Company Number: US-TAIHOP-2023-008336

PATIENT
  Sex: Male

DRUGS (6)
  1. LONSURF [Suspect]
     Active Substance: TIPIRACIL HYDROCHLORIDE\TRIFLURIDINE
     Indication: Rectal cancer
     Dosage: CYCLE UNKNOWN;FORM STRENGTH 15 MG AND 20 MG
     Route: 048
     Dates: start: 20230831
  2. LONSURF [Suspect]
     Active Substance: TIPIRACIL HYDROCHLORIDE\TRIFLURIDINE
     Dosage: CYCLE UNKNOWN
     Route: 048
  3. BETAMETH DIP [Concomitant]
     Indication: Product used for unknown indication
     Dosage: CRE
  4. A-HYDROCORT [Concomitant]
     Active Substance: HYDROCORTISONE SODIUM SUCCINATE
     Indication: Product used for unknown indication
     Dosage: CRE
  5. MAGNESIUM [Concomitant]
     Active Substance: MAGNESIUM
     Indication: Product used for unknown indication
  6. PERCOCET [Concomitant]
     Active Substance: ACETAMINOPHEN\OXYCODONE HYDROCHLORIDE
     Indication: Product used for unknown indication
     Dosage: 5-325 MG

REACTIONS (9)
  - Chronic kidney disease [Unknown]
  - Peroneal nerve palsy [Unknown]
  - Nausea [Not Recovered/Not Resolved]
  - Dyspnoea [Unknown]
  - Cancer pain [Unknown]
  - Anaemia [Unknown]
  - Vomiting [Unknown]
  - Malaise [Unknown]
  - Decreased appetite [Not Recovered/Not Resolved]
